FAERS Safety Report 4767182-3 (Version None)
Quarter: 2005Q3

REPORT INFORMATION
  Report Type: 
  Country: None (occurrence: None)
  Receive Date: 20050909
  Receipt Date: 20050825
  Transmission Date: 20060218
  Serious: Yes (Hospitalization, Other)
  Sender: FDA-Public Use
  Company Number: 20122

PATIENT
  Age: 68 Year
  Sex: Female
  Weight: 92.5338 kg

DRUGS (3)
  1. LEUCOVORIN CALCIUM [Suspect]
     Indication: COLORECTAL CANCER
     Dates: start: 20050725
  2. LEUCOVORIN CALCIUM [Suspect]
     Indication: METASTASES TO LIVER
     Dates: start: 20050725
  3. . [Concomitant]

REACTIONS (2)
  - DIALYSIS [None]
  - RENAL FAILURE [None]
